FAERS Safety Report 8362230 (Version 2)
Quarter: 2014Q3

REPORT INFORMATION
  Report Type: Spontaneous
  Country: US (occurrence: US)
  Receive Date: 20120130
  Receipt Date: 20140709
  Transmission Date: 20150326
  Serious: Yes (Death, Hospitalization)
  Sender: FDA-Public Use
  Company Number: US-GLAXOSMITHKLINE-B0717865A

PATIENT
  Sex: Female

DRUGS (1)
  1. AVANDIA [Suspect]
     Active Substance: ROSIGLITAZONE MALEATE
     Indication: DIABETES MELLITUS
     Dosage: 4MG PER DAY
     Route: 048
     Dates: start: 20040221, end: 20050822

REACTIONS (8)
  - Cardiac failure congestive [Unknown]
  - Coronary artery disease [Fatal]
  - Pulmonary oedema [Unknown]
  - Acute coronary syndrome [Unknown]
  - Coronary artery thrombosis [Fatal]
  - Mitral valve prolapse [Unknown]
  - Acute myocardial infarction [Fatal]
  - Arteriosclerosis coronary artery [Unknown]
